FAERS Safety Report 8142397-5 (Version None)
Quarter: 2012Q1

REPORT INFORMATION
  Report Type: 
  Country: None (occurrence: None)
  Receive Date: 20120216
  Receipt Date: 20120206
  Transmission Date: 20120608
  Serious: Yes (Hospitalization)
  Sender: FDA-Public Use
  Company Number: IT-BRISTOL-MYERS SQUIBB COMPANY-16219479

PATIENT
  Age: 89 Year
  Sex: Male

DRUGS (4)
  1. SPRYCEL [Suspect]
     Indication: CHRONIC MYELOID LEUKAEMIA
     Dosage: 18FEB10-14FEB11 STOPPED ON 14OCT11
     Route: 048
     Dates: start: 20100218, end: 20110214
  2. PREDNISONE TAB [Concomitant]
     Dates: start: 20100101, end: 20120131
  3. LASIX [Concomitant]
  4. SPIRONOLACTONE [Concomitant]
     Dates: start: 20000101, end: 20120131

REACTIONS (2)
  - PLEURAL EFFUSION [None]
  - RESPIRATORY FAILURE [None]
